FAERS Safety Report 8135261-9 (Version None)
Quarter: 2012Q1

REPORT INFORMATION
  Report Type: 
  Country: None (occurrence: None)
  Receive Date: 20120214
  Receipt Date: 20120208
  Transmission Date: 20120608
  Serious: Yes (Hospitalization)
  Sender: FDA-Public Use
  Company Number: US-BAYER-2011-031852

PATIENT
  Age: 36 Year
  Sex: Female
  Weight: 100.23 kg

DRUGS (8)
  1. AUGMENTIN '125' [Concomitant]
     Indication: TONSILLITIS
     Dosage: UNK, BID
     Dates: start: 20090415, end: 20090425
  2. YAZ [Suspect]
     Indication: CONTRACEPTION
     Dosage: UNK
     Dates: start: 20080701, end: 20091101
  3. ALKA SELTZER [Concomitant]
     Indication: PAIN
     Dosage: 50 MG, TID
     Route: 048
     Dates: start: 20090324
  4. JUNEL FE 1.5/30 [Concomitant]
     Dosage: UNK
     Dates: start: 20100101
  5. MECLIZINE [Concomitant]
     Indication: DIZZINESS
     Dosage: 25 MG, QID
     Route: 048
     Dates: start: 20090324
  6. LOESTRIN 1.5/30 [Concomitant]
     Dosage: UNK
     Dates: start: 20080401
  7. AMOXICILLIN [Concomitant]
     Indication: TONSILLITIS
     Dosage: 250 MG, TID
     Route: 048
     Dates: start: 20090401
  8. ALBUTEROL [Concomitant]
     Route: 045

REACTIONS (8)
  - INJURY [None]
  - ANXIETY [None]
  - PAIN [None]
  - CHOLELITHIASIS [None]
  - ABDOMINAL PAIN [None]
  - JAUNDICE [None]
  - CHOLECYSTITIS CHRONIC [None]
  - BILE DUCT STONE [None]
